FAERS Safety Report 5914103-3 (Version None)
Quarter: 2008Q4

REPORT INFORMATION
  Report Type: 
  Country: None (occurrence: None)
  Receive Date: 20081009
  Receipt Date: 20080306
  Transmission Date: 20090506
  Serious: Yes (Life-Threatening, Hospitalization)
  Sender: FDA-Public Use
  Company Number: GB-JNJCH-2008005853

PATIENT
  Age: 69 Year
  Sex: Female

DRUGS (14)
  1. ACETAMINOPHEN [Suspect]
     Indication: PAIN
     Dosage: TEXT:4 GRAMS ONCE DAILY
     Route: 065
  2. ACETAMINOPHEN [Suspect]
     Indication: INTERVERTEBRAL DISCITIS
  3. FLOXACILLIN SODIUM [Suspect]
     Indication: INTERVERTEBRAL DISCITIS
     Dosage: TEXT:8 GRAMS ONCE DAILY
     Route: 042
  4. CALCIUM CHANNEL BLOCKERS [Concomitant]
     Indication: DRUG USE FOR UNKNOWN INDICATION
     Dosage: TEXT:UNSPECIFIED
     Route: 065
  5. CEFTRIAXONE [Concomitant]
     Indication: SEPSIS
     Dosage: TEXT:UNSPECIFIED
     Route: 065
  6. GENTAMICIN SULFATE [Concomitant]
     Indication: DRUG USE FOR UNKNOWN INDICATION
     Dosage: TEXT:UNSPECIFIED
     Route: 065
  7. GLICLAZIDE [Concomitant]
     Indication: DRUG USE FOR UNKNOWN INDICATION
     Dosage: TEXT:UNSPECIFIED
     Route: 065
  8. METRONIDAZOLE [Concomitant]
     Indication: SEPSIS
     Dosage: TEXT:UNSPECIFIED
     Route: 065
  9. ALL OTHER THERAPEUTIC PRODUCTS [Concomitant]
     Dosage: TEXT:UNSPECIFIED
     Route: 065
  10. OPIOIDS [Concomitant]
     Indication: ANALGESIA
     Dosage: TEXT:UNSPECIFIED
     Route: 065
  11. TRAMADOL HCL [Concomitant]
     Indication: ANGINA PECTORIS
     Dosage: TEXT:UNSPECIFIED
     Route: 065
  12. CODEINE SUL TAB [Concomitant]
     Indication: PAIN
     Dosage: TEXT:AS NECESSARY
     Route: 065
  13. ORGANIC NITRATES [Concomitant]
     Indication: DRUG USE FOR UNKNOWN INDICATION
  14. METRONIDAZOLE [Concomitant]
     Dosage: TEXT:UNSPECIFIED
     Route: 065

REACTIONS (17)
  - ABDOMINAL TENDERNESS [None]
  - ACUTE RESPIRATORY DISTRESS SYNDROME [None]
  - BLOOD CHLORIDE INCREASED [None]
  - DEPRESSED LEVEL OF CONSCIOUSNESS [None]
  - ENCEPHALOPATHY [None]
  - METABOLIC ACIDOSIS [None]
  - MULTI-ORGAN FAILURE [None]
  - PYROGLUTAMATE INCREASED [None]
  - RENAL FAILURE [None]
  - RENAL IMPAIRMENT [None]
  - RENAL INJURY [None]
  - RESPIRATORY DISTRESS [None]
  - RESPIRATORY FAILURE [None]
  - SEPSIS [None]
  - SEPTIC SHOCK [None]
  - SOMNOLENCE [None]
  - WHEEZING [None]
